FAERS Safety Report 5092219-4 (Version None)
Quarter: 2006Q3

REPORT INFORMATION
  Report Type: 
  Country: None (occurrence: None)
  Receive Date: 20060828
  Receipt Date: 20060828
  Transmission Date: 20061208
  Serious: No
  Sender: FDA-Public Use
  Company Number: None

PATIENT
  Age: 46 Year
  Sex: Male
  Weight: 105.2345 kg

DRUGS (1)
  1. GASTROGRAFIN [Suspect]
     Indication: SCAN WITH CONTRAST
     Dosage: ONETIME PO
     Route: 048

REACTIONS (8)
  - DYSARTHRIA [None]
  - HEADACHE [None]
  - HEART RATE INCREASED [None]
  - PHARYNGEAL OEDEMA [None]
  - PHARYNGOLARYNGEAL PAIN [None]
  - RASH [None]
  - SWELLING FACE [None]
  - THROAT IRRITATION [None]
